FAERS Safety Report 19098014 (Version 2)
Quarter: 2021Q3

REPORT INFORMATION
  Report Type: Spontaneous
  Country: US (occurrence: US)
  Receive Date: 20210406
  Receipt Date: 20210728
  Transmission Date: 20211014
  Serious: Yes (Life-Threatening, Hospitalization, Other)
  Sender: FDA-Public Use
  Company Number: US-LUPIN PHARMACEUTICALS INC.-2021-04255

PATIENT
  Age: 38 Year
  Sex: Female

DRUGS (6)
  1. ZOLPIDEM [Suspect]
     Active Substance: ZOLPIDEM TARTRATE
     Indication: INSOMNIA
     Dosage: THE PATIENT WAS PRESCRIBED 5?10 MG OF ZOLPIDEM
     Route: 065
  2. QUETIAPINE TABLETS [Suspect]
     Active Substance: QUETIAPINE
     Dosage: 1500 MILLIGRAM (SHE INGESTED SIXTY TABLETS OF 25 MG QUETIAPINE)
     Route: 048
  3. ZOLPIDEM [Suspect]
     Active Substance: ZOLPIDEM TARTRATE
     Dosage: 10 MILLIGRAM
     Route: 065
  4. QUETIAPINE TABLETS [Suspect]
     Active Substance: QUETIAPINE
     Indication: INSOMNIA
     Dosage: 25 MILLIGRAM (AT BEDTIME AS NEEDED FOR INSOMNIA)
     Route: 065
  5. DEXTROAMPHET SACCHARAT, AMPHET ASPARTATE, DEXTROAMPHET SULFATE AND AMPHET SULFAT [Concomitant]
     Active Substance: AMPHETAMINE ASPARTATE\AMPHETAMINE SULFATE\DEXTROAMPHETAMINE SACCHARATE\DEXTROAMPHETAMINE SULFATE
     Indication: ATTENTION DEFICIT HYPERACTIVITY DISORDER
     Dosage: 30 MILLIGRAM, BID (EXTENDED RELEASE)
     Route: 065
  6. LORAZEPAM. [Concomitant]
     Active Substance: LORAZEPAM
     Indication: ANXIETY
     Dosage: 0.5 MILLIGRAM, QD (AS NEEDED)
     Route: 065

REACTIONS (8)
  - Abnormal behaviour [Recovered/Resolved]
  - Unresponsive to stimuli [Recovered/Resolved]
  - Amnesia [Recovered/Resolved]
  - Overdose [Unknown]
  - Respiratory depression [Recovered/Resolved]
  - Suicidal ideation [Recovered/Resolved]
  - Somnolence [Recovered/Resolved]
  - Suicide attempt [Unknown]
